FAERS Safety Report 8174025-7 (Version None)
Quarter: 2012Q1

REPORT INFORMATION
  Report Type: 
  Country: None (occurrence: None)
  Receive Date: 20120227
  Receipt Date: 20120213
  Transmission Date: 20120608
  Serious: Yes (Other)
  Sender: FDA-Public Use
  Company Number: 1202-082

PATIENT
  Age: 82 Year
  Sex: Female

DRUGS (1)
  1. EYLEA [Suspect]
     Indication: AGE-RELATED MACULAR DEGENERATION
     Dosage: INTRAVITREAL
     Dates: start: 20120126

REACTIONS (6)
  - ANTERIOR CHAMBER CELL [None]
  - RETINAL HAEMORRHAGE [None]
  - EYE INFLAMMATION [None]
  - VITREOUS HAEMORRHAGE [None]
  - VISUAL ACUITY REDUCED [None]
  - RENAL VEIN OCCLUSION [None]
